FAERS Safety Report 9469211 (Version 1)
Quarter: 2013Q3

REPORT INFORMATION
  Report Type: Spontaneous
  Country: US (occurrence: US)
  Receive Date: 20130821
  Receipt Date: 20130821
  Transmission Date: 20140515
  Serious: No
  Sender: FDA-Public Use
  Company Number: US-NOVEN-13US007326

PATIENT
  Age: 49 Year
  Sex: Female

DRUGS (1)
  1. MINIVELLE [Suspect]
     Indication: HORMONE REPLACEMENT THERAPY
     Dosage: 0.0375MG, UNK
     Route: 062
     Dates: start: 20130709, end: 20130713

REACTIONS (3)
  - Rash generalised [Recovered/Resolved]
  - Lip swelling [Recovered/Resolved]
  - Off label use [Recovered/Resolved]
